FAERS Safety Report 15908718 (Version 3)
Quarter: 2023Q4

REPORT INFORMATION
  Report Type: Spontaneous
  Country: US (occurrence: US)
  Receive Date: 20190204
  Receipt Date: 20231110
  Transmission Date: 20240110
  Serious: Yes (Hospitalization, Other)
  Sender: FDA-Public Use
  Company Number: US-GILEAD-2019-0387812

PATIENT
  Age: 41 Year
  Sex: Male
  Weight: 101.59 kg

DRUGS (48)
  1. VIREAD [Suspect]
     Active Substance: TENOFOVIR DISOPROXIL FUMARATE
     Indication: HIV infection
     Dosage: UNK
     Route: 048
     Dates: start: 2009, end: 2014
  2. VIREAD [Suspect]
     Active Substance: TENOFOVIR DISOPROXIL FUMARATE
     Dosage: UNK
     Route: 048
     Dates: start: 200909, end: 201210
  3. VIREAD [Suspect]
     Active Substance: TENOFOVIR DISOPROXIL FUMARATE
     Dosage: UNK
     Route: 048
     Dates: start: 201706
  4. VIREAD [Suspect]
     Active Substance: TENOFOVIR DISOPROXIL FUMARATE
     Dosage: UNK
     Route: 048
     Dates: start: 201901, end: 201902
  5. STRIBILD [Suspect]
     Active Substance: COBICISTAT\ELVITEGRAVIR\EMTRICITABINE\TENOFOVIR DISOPROXIL FUMARATE
     Indication: HIV infection
     Dosage: UNK
     Route: 048
     Dates: start: 2014, end: 2015
  6. STRIBILD [Suspect]
     Active Substance: COBICISTAT\ELVITEGRAVIR\EMTRICITABINE\TENOFOVIR DISOPROXIL FUMARATE
     Dosage: UNK
     Route: 048
     Dates: start: 20131122, end: 20140226
  7. FUROSEMIDE [Concomitant]
     Active Substance: FUROSEMIDE
  8. PREZISTA [Concomitant]
     Active Substance: DARUNAVIR ETHANOLATE
  9. EPIVIR [Concomitant]
     Active Substance: LAMIVUDINE
  10. RETROVIR [Concomitant]
     Active Substance: ZIDOVUDINE
  11. EPZICOM [Concomitant]
     Active Substance: ABACAVIR SULFATE\LAMIVUDINE
  12. PREZCOBIX [Concomitant]
     Active Substance: COBICISTAT\DARUNAVIR ETHANOLATE
  13. ZIDOVUDINE [Concomitant]
     Active Substance: ZIDOVUDINE
  14. COMBIVIR [Concomitant]
     Active Substance: LAMIVUDINE\ZIDOVUDINE
  15. EDURANT [Concomitant]
     Active Substance: RILPIVIRINE HYDROCHLORIDE
  16. NEVIRAPINE [Concomitant]
     Active Substance: NEVIRAPINE
  17. TRIUMEQ [Concomitant]
     Active Substance: ABACAVIR SULFATE\DOLUTEGRAVIR SODIUM\LAMIVUDINE
  18. COMBIVENT [Concomitant]
     Active Substance: ALBUTEROL SULFATE\IPRATROPIUM BROMIDE
  19. ATORVASTATIN [Concomitant]
     Active Substance: ATORVASTATIN
  20. ATENOLOL [Concomitant]
     Active Substance: ATENOLOL
  21. OXYCODONE [Concomitant]
     Active Substance: OXYCODONE
  22. LORAZEPAM [Concomitant]
     Active Substance: LORAZEPAM
  23. TAMSULOSIN [Concomitant]
     Active Substance: TAMSULOSIN
  24. PREGABALIN [Concomitant]
     Active Substance: PREGABALIN
  25. VENLAFAXINE [Concomitant]
     Active Substance: VENLAFAXINE HYDROCHLORIDE
  26. ALBUTEROL SULFATE [Concomitant]
     Active Substance: ALBUTEROL SULFATE
  27. MIRTAZAPINE [Concomitant]
     Active Substance: MIRTAZAPINE
  28. BREO ELLIPTA [Concomitant]
     Active Substance: FLUTICASONE FUROATE\VILANTEROL TRIFENATATE
  29. AMOXICILLIN [Concomitant]
     Active Substance: AMOXICILLIN
  30. IBUPROFEN [Concomitant]
     Active Substance: IBUPROFEN
  31. SODIUM POLYSTYRENE SULFONATE [Concomitant]
     Active Substance: SODIUM POLYSTYRENE SULFONATE
  32. METHYLPREDNISOLONE [Concomitant]
     Active Substance: METHYLPREDNISOLONE
  33. AVELOX [Concomitant]
     Active Substance: MOXIFLOXACIN HYDROCHLORIDE
  34. NOVOLOG [Concomitant]
     Active Substance: INSULIN ASPART
  35. FLOVENT [Concomitant]
     Active Substance: FLUTICASONE PROPIONATE
  36. CLINDAMYCIN [Concomitant]
     Active Substance: CLINDAMYCIN
  37. METOPROLOL [Concomitant]
     Active Substance: METOPROLOL
  38. AZITHROMYCIN [Concomitant]
     Active Substance: AZITHROMYCIN
  39. FLUCONAZOLE [Concomitant]
     Active Substance: FLUCONAZOLE
  40. SENNA PLUS [SENNA ALEXANDRINA] [Concomitant]
  41. FERROUS SULFATE [Concomitant]
     Active Substance: FERROUS SULFATE
  42. MELOXICAM [Concomitant]
     Active Substance: MELOXICAM
  43. ACETAMINOPHEN\HYDROCODONE [Concomitant]
     Active Substance: ACETAMINOPHEN\HYDROCODONE
  44. PREDNISONE [Concomitant]
     Active Substance: PREDNISONE
  45. HYDROCHLOROTHIAZIDE [Concomitant]
     Active Substance: HYDROCHLOROTHIAZIDE
  46. AMOXICILLIN\CLAVULANATE POTASSIUM [Concomitant]
     Active Substance: AMOXICILLIN\CLAVULANATE POTASSIUM
  47. DAPSONE [Concomitant]
     Active Substance: DAPSONE
  48. ABACAVIR [Concomitant]
     Active Substance: ABACAVIR

REACTIONS (10)
  - Acute kidney injury [Recovered/Resolved]
  - Chronic kidney disease [Not Recovered/Not Resolved]
  - Renal disorder [Unknown]
  - Pain [Not Recovered/Not Resolved]
  - Emotional distress [Not Recovered/Not Resolved]
  - Anxiety [Not Recovered/Not Resolved]
  - Anhedonia [Not Recovered/Not Resolved]
  - Economic problem [Not Recovered/Not Resolved]
  - Depression [Not Recovered/Not Resolved]
  - Loss of personal independence in daily activities [Unknown]

NARRATIVE: CASE EVENT DATE: 20120926
